FAERS Safety Report 23056132 (Version 1)
Quarter: 2023Q4

REPORT INFORMATION
  Report Type: Spontaneous
  Country: CA (occurrence: CA)
  Receive Date: 20231011
  Receipt Date: 20231011
  Transmission Date: 20240110
  Serious: Yes (Hospitalization)
  Sender: FDA-Public Use
  Company Number: CA-GLAXOSMITHKLINE-CA2023136465

PATIENT

DRUGS (2)
  1. ADVAIR HFA [Suspect]
     Active Substance: FLUTICASONE PROPIONATE\SALMETEROL XINAFOATE
     Indication: Asthma
     Dosage: 2 PUFF(S), BID,250
     Route: 055
  2. BISOPROLOL [Concomitant]
     Active Substance: BISOPROLOL\BISOPROLOL FUMARATE
     Indication: Cardiac disorder
     Dosage: UNK

REACTIONS (10)
  - Blood potassium decreased [Unknown]
  - Bronchitis [Unknown]
  - Dizziness [Unknown]
  - Dyspepsia [Unknown]
  - Eye pain [Unknown]
  - Sinusitis [Unknown]
  - Heart rate increased [Unknown]
  - Eye discharge [Unknown]
  - Bronchial secretion retention [Unknown]
  - Cardiac discomfort [Unknown]
